FAERS Safety Report 7013186-X (Version None)
Quarter: 2010Q3

REPORT INFORMATION
  Report Type: 
  Country: None (occurrence: None)
  Receive Date: 20100924
  Receipt Date: 20100915
  Transmission Date: 20110219
  Serious: Yes (Other)
  Sender: FDA-Public Use
  Company Number: AU-JNJFOC-20100905754

PATIENT
  Sex: Male

DRUGS (3)
  1. RISPERDAL [Suspect]
     Indication: SCHIZOPHRENIA
     Dosage: FOR 6 DAYS
     Route: 048
  2. ANTIHYPERTENSIVE (NOS) [Concomitant]
     Indication: HYPERTENSION
     Route: 065
  3. ANTI-DIABETIC MEDICINE [Concomitant]
     Indication: DIABETES MELLITUS
     Route: 065

REACTIONS (6)
  - AGITATION [None]
  - CONFUSIONAL STATE [None]
  - DYSARTHRIA [None]
  - EYE PRURITUS [None]
  - RASH [None]
  - URINARY INCONTINENCE [None]
